FAERS Safety Report 8150707-8 (Version None)
Quarter: 2012Q1

REPORT INFORMATION
  Report Type: 
  Country: None (occurrence: None)
  Receive Date: 20120220
  Receipt Date: 20120217
  Transmission Date: 20120608
  Serious: Yes (Death, Hospitalization)
  Sender: FDA-Public Use
  Company Number: PHHY2012BR013767

PATIENT
  Age: 83 Year
  Sex: Female

DRUGS (4)
  1. PHENOBARBITAL TAB [Concomitant]
     Indication: SLEEP DISORDER
     Dosage: 1 DF, DAILY
  2. DIOVAN HCT [Suspect]
     Indication: HYPERTENSION
     Dosage: 1 DF (160 MG VALS AND 25 MG HYDRO), DAILY
     Route: 048
  3. FRISIUM [Concomitant]
     Indication: EPILEPSY
     Dosage: 1 DF, DAILY
  4. TEGRETOL-XR [Suspect]
     Indication: EPILEPSY
     Dosage: 1 DF, DAILY
     Route: 048

REACTIONS (2)
  - FEMUR FRACTURE [None]
  - RENAL FAILURE [None]
